FAERS Safety Report 6221129-1 (Version None)
Quarter: 2009Q2

REPORT INFORMATION
  Report Type: 
  Country: None (occurrence: None)
  Receive Date: 20090610
  Receipt Date: 20090603
  Transmission Date: 20091009
  Serious: Yes (Hospitalization)
  Sender: FDA-Public Use
  Company Number: US-GILEAD-2009-0022336

PATIENT
  Sex: Female
  Weight: 47.67 kg

DRUGS (14)
  1. LETAIRIS [Suspect]
     Indication: PULMONARY ARTERIAL HYPERTENSION
     Route: 048
     Dates: start: 20071206
  2. REMODULIN [Concomitant]
     Dates: start: 20070522
  3. REVATIO [Concomitant]
  4. LASIX [Concomitant]
  5. LANOXIN [Concomitant]
  6. COUMADIN [Concomitant]
  7. ALDACTONE [Concomitant]
  8. NASACORT [Concomitant]
  9. VANCOMYCIN HCL [Concomitant]
  10. PREDNISONE [Concomitant]
  11. PLAQUENIL [Concomitant]
  12. SODIUM CHLORIDE [Concomitant]
  13. FERROUS SULFATE TAB [Concomitant]
  14. POTASSIUM CHLORIDE [Concomitant]

REACTIONS (1)
  - CARDIAC TAMPONADE [None]
